FAERS Safety Report 6654765-9 (Version None)
Quarter: 2010Q1

REPORT INFORMATION
  Report Type: 
  Country: None (occurrence: None)
  Receive Date: 20100328
  Receipt Date: 20100316
  Transmission Date: 20100710
  Serious: Yes (Hospitalization)
  Sender: FDA-Public Use
  Company Number: JP-BRISTOL-MYERS SQUIBB COMPANY-15006570

PATIENT
  Age: 62 Year
  Sex: Male
  Weight: 49 kg

DRUGS (15)
  1. CETUXIMAB [Suspect]
     Indication: HEAD AND NECK CANCER
     Dosage: STRENGTH:5MG/ML;385MG ONCE A WEEK FORM 24SEP09; RECENT DOSE: 24FEB10
     Route: 042
     Dates: start: 20090917
  2. CISPLATIN [Suspect]
     Indication: HEAD AND NECK CANCER
     Dosage: RECENT INF: 100MG/M2 ON 02FEB10
     Route: 042
     Dates: start: 20090917, end: 20100206
  3. FLUOROURACIL [Suspect]
     Indication: HEAD AND NECK CANCER
     Dosage: DAY 1-4 OF CYCLE; INITIALLY 1000MG/M2; RECENT DOSE: 09FEB10
     Route: 042
     Dates: start: 20090917, end: 20100209
  4. SOLANAX [Concomitant]
     Indication: MENTAL DISORDER
     Route: 048
     Dates: start: 20090918
  5. MAGLAX [Concomitant]
     Indication: DRUG ABUSE
     Dosage: 1 DF= 330MG-660MG
     Route: 048
     Dates: start: 20090925
  6. NAUZELIN [Concomitant]
     Indication: ANTIEMETIC SUPPORTIVE CARE
     Route: 048
     Dates: start: 20090925
  7. MINOCYCLINE HCL [Concomitant]
     Indication: RASH
     Route: 048
     Dates: start: 20090928
  8. AZUNOL [Concomitant]
     Indication: STOMATITIS
     Route: 061
     Dates: start: 20091001
  9. DEXALTIN [Concomitant]
     Indication: STOMATITIS
     Dosage: ORAL OINTMENT
     Dates: start: 20091001
  10. HIRUDOID [Concomitant]
     Indication: DRY SKIN
     Dates: start: 20091003
  11. ALLEGRA [Concomitant]
     Indication: PRURITUS
     Route: 048
     Dates: start: 20091118
  12. LANSOPRAZOLE [Concomitant]
     Indication: GASTRIC MUCOSAL LESION
     Route: 048
     Dates: start: 20100201
  13. GLYSENNID [Concomitant]
     Indication: DRUG ABUSE
     Route: 048
     Dates: start: 20100205
  14. GENTAMICIN [Concomitant]
     Indication: INFECTION
     Dosage: OINTMENT
     Dates: start: 20100217
  15. CALONAL [Concomitant]
     Indication: ANALGESIC THERAPY
     Route: 048
     Dates: start: 20100227

REACTIONS (1)
  - HEADACHE [None]
